FAERS Safety Report 22818518 (Version 3)
Quarter: 2023Q4

REPORT INFORMATION
  Report Type: Spontaneous
  Country: EG (occurrence: EG)
  Receive Date: 20230814
  Receipt Date: 20231003
  Transmission Date: 20240110
  Serious: Yes (Hospitalization)
  Sender: FDA-Public Use
  Company Number: EG-NOVOPROD-1099452

PATIENT
  Sex: Male
  Weight: 3.5 kg

DRUGS (2)
  1. INSULATARD NPH HUMAN [Suspect]
     Active Substance: INSULIN HUMAN
     Indication: Type 2 diabetes mellitus
     Dosage: 50 IU, QD(25 IU BEFORE BREAKFAST, 25 IU BEFORE DINNER)
     Route: 064
     Dates: start: 20230705
  2. ACTRAPID [Suspect]
     Active Substance: INSULIN HUMAN
     Indication: Type 2 diabetes mellitus
     Dosage: 50 IU, QD (18 IU BEFORE BREAKFAST, 18 IU BEFORE LUNCH,14 IU BEFORE DINNER)
     Route: 064
     Dates: start: 20230705

REACTIONS (2)
  - Jaundice neonatal [Recovered/Resolved]
  - Foetal exposure during pregnancy [Recovered/Resolved]

NARRATIVE: CASE EVENT DATE: 20230705
